FAERS Safety Report 17521430 (Version 1)
Quarter: 2020Q1

REPORT INFORMATION
  Report Type: Spontaneous
  Country: PR (occurrence: PR)
  Receive Date: 20200310
  Receipt Date: 20200310
  Transmission Date: 20200409
  Serious: Yes (Death, Hospitalization)
  Sender: FDA-Public Use
  Company Number: None

PATIENT
  Age: 73 Year
  Sex: Male
  Weight: 85.5 kg

DRUGS (8)
  1. MELATONIN [Concomitant]
     Active Substance: MELATONIN
  2. CARBIDOPA-LEVODOPA [Concomitant]
     Active Substance: CARBIDOPA\LEVODOPA
  3. SYNTHROID [Concomitant]
     Active Substance: LEVOTHYROXINE SODIUM
  4. NUPLAZID [Suspect]
     Active Substance: PIMAVANSERIN TARTRATE
     Indication: DEMENTIA WITH LEWY BODIES
  5. MEMANTINE. [Concomitant]
     Active Substance: MEMANTINE
  6. CENTRUM [Concomitant]
     Active Substance: VITAMINS
  7. CELEXA [Concomitant]
     Active Substance: CITALOPRAM HYDROBROMIDE
  8. METFORMIN [Concomitant]
     Active Substance: METFORMIN HYDROCHLORIDE

REACTIONS (8)
  - Fall [None]
  - Insomnia [None]
  - Aggression [None]
  - Constipation [None]
  - Visual agnosia [None]
  - Myocardial infarction [None]
  - Hallucination, visual [None]
  - Impaired self-care [None]

NARRATIVE: CASE EVENT DATE: 20191231
